FAERS Safety Report 9346171 (Version 3)
Quarter: 2013Q3

REPORT INFORMATION
  Report Type: Spontaneous
  Country: CN (occurrence: CN)
  Receive Date: 20130613
  Receipt Date: 20130711
  Transmission Date: 20140515
  Serious: Yes (Life-Threatening, Hospitalization)
  Sender: FDA-Public Use
  Company Number: CN-COVIDIEN/TYCO HEALTHCARE/MALLINCKRODT-T201302812

PATIENT
  Age: 59 Year
  Sex: Male

DRUGS (4)
  1. OPTIRAY [Suspect]
     Indication: ANGIOGRAM
     Dosage: 85 ML, GIVEN IN 10 DOSAGE UNITS
     Route: 013
     Dates: start: 20130507, end: 20130507
  2. HEPARIN SODIUM [Concomitant]
     Indication: PRODUCT USED FOR UNKNOWN INDICATION
     Dosage: UNK
     Dates: start: 20130507, end: 20130507
  3. LIDOCAINE [Concomitant]
     Indication: PRODUCT USED FOR UNKNOWN INDICATION
     Dosage: UNK
     Dates: start: 20130507, end: 20130507
  4. GLUCOSE [Concomitant]
     Indication: PRODUCT USED FOR UNKNOWN INDICATION
     Dosage: UNK
     Dates: start: 20130507, end: 20130507

REACTIONS (2)
  - Blindness [Recovering/Resolving]
  - Apnoea [Recovered/Resolved]
